FAERS Safety Report 8282123-2 (Version None)
Quarter: 2012Q2

REPORT INFORMATION
  Report Type: 
  Country: None (occurrence: None)
  Receive Date: 20120410
  Receipt Date: 20120402
  Transmission Date: 20120825
  Serious: Yes (Death, Hospitalization)
  Sender: FDA-Public Use
  Company Number: DSA_48843_2012

PATIENT
  Sex: Female

DRUGS (3)
  1. VALIUM [Concomitant]
  2. XENAZINE [Suspect]
     Indication: HUNTINGTON'S DISEASE
     Dosage: (18.75 MG BID, TOTAL DAILY DOSE: [ONE AND 1/2 TABLET TWICE DAILY] ORAL), (6.25 MG BID ORAL)
     Route: 048
     Dates: end: 20120201
  3. XENAZINE [Suspect]
     Indication: HUNTINGTON'S DISEASE
     Dosage: (18.75 MG BID, TOTAL DAILY DOSE: [ONE AND 1/2 TABLET TWICE DAILY] ORAL), (6.25 MG BID ORAL)
     Route: 048
     Dates: start: 20111220, end: 20120323

REACTIONS (5)
  - WHITE BLOOD CELL COUNT INCREASED [None]
  - DRUG DOSE OMISSION [None]
  - BLOOD POTASSIUM INCREASED [None]
  - UNRESPONSIVE TO STIMULI [None]
  - PNEUMONIA ASPIRATION [None]
